FAERS Safety Report 10603003 (Version 3)
Quarter: 2014Q4

REPORT INFORMATION
  Report Type: Spontaneous
  Country: BR (occurrence: BR)
  Receive Date: 20141124
  Receipt Date: 20141209
  Transmission Date: 20150529
  Serious: Yes (Other)
  Sender: FDA-Public Use
  Company Number: BR-GALDERMA-BR14004296

PATIENT
  Age: 16 Year
  Sex: Male
  Weight: 60 kg

DRUGS (8)
  1. EPIDUO [Suspect]
     Active Substance: ADAPALENE\BENZOYL PEROXIDE
     Dosage: 0.1%-2.5%
     Route: 061
     Dates: start: 20140530
  2. DERMOTIVIN CONTROL [Suspect]
     Active Substance: COSMETICS
     Indication: THERAPEUTIC SKIN CARE TOPICAL
     Route: 061
     Dates: start: 20140512, end: 201406
  3. DERMOTIVIN ORIGINAL [Suspect]
     Active Substance: COSMETICS
     Indication: THERAPEUTIC SKIN CARE TOPICAL
     Route: 061
     Dates: start: 201406
  4. EPIDUO [Suspect]
     Active Substance: ADAPALENE\BENZOYL PEROXIDE
     Indication: ACNE
     Dosage: 0.1%-2.5%
     Route: 061
     Dates: start: 20140512, end: 20140530
  5. TETRALYSAL [Suspect]
     Active Substance: LYMECYCLINE
     Indication: ACNE
     Route: 048
     Dates: start: 20140515
  6. TETRALYSAL [Suspect]
     Active Substance: LYMECYCLINE
     Route: 048
     Dates: start: 201407
  7. TETRALYSAL [Suspect]
     Active Substance: LYMECYCLINE
     Route: 048
     Dates: start: 201406, end: 201407
  8. CETAPHIL [Suspect]
     Active Substance: AVOBENZONE\OCTOCRYLENE\TRICLOSAN
     Indication: THERAPEUTIC SKIN CARE TOPICAL
     Route: 061
     Dates: start: 20140512, end: 20140612

REACTIONS (3)
  - Weight decreased [Recovering/Resolving]
  - Hepatitis [Recovering/Resolving]
  - Drug ineffective [Recovering/Resolving]
